FAERS Safety Report 4787275-4 (Version None)
Quarter: 2005Q3

REPORT INFORMATION
  Report Type: 
  Country: None (occurrence: None)
  Receive Date: 20050926
  Receipt Date: 20050628
  Transmission Date: 20060218
  Serious: No
  Sender: FDA-Public Use
  Company Number: 214443

PATIENT
  Age: 52 Year
  Sex: Female

DRUGS (7)
  1. AVASTIN [Suspect]
     Indication: COLORECTAL CANCER METASTATIC
     Dosage: 5 MG/KG, UNKNOWN, UNK
     Route: 065
     Dates: start: 20040101
  2. FLUOROURACIL [Concomitant]
  3. LEUCOVORIN CALCIUM [Concomitant]
  4. OXALIPLATIN (OXALIPLATIN) [Concomitant]
  5. AMITRIPTYLINE HCL [Concomitant]
  6. CELEXA [Concomitant]
  7. IMODIUM [Concomitant]

REACTIONS (1)
  - ANKLE FRACTURE [None]
